FAERS Safety Report 7023570-6 (Version None)
Quarter: 2010Q3

REPORT INFORMATION
  Report Type: 
  Country: None (occurrence: None)
  Receive Date: 20100930
  Receipt Date: 20100921
  Transmission Date: 20110219
  Serious: Yes (Hospitalization)
  Sender: FDA-Public Use
  Company Number: ES-B.I. PHARMACEUTICALS,INC./RIDGEFIELD-2010-ES-00210ES

PATIENT
  Age: 68 Year
  Sex: Female

DRUGS (5)
  1. MIRAPEX [Suspect]
     Indication: PARKINSON'S DISEASE
     Dosage: 0.36 MG
     Route: 048
     Dates: start: 20100101
  2. AZILECT [Suspect]
     Indication: PARKINSON'S DISEASE
     Route: 048
     Dates: start: 20100101, end: 20100618
  3. BESITRAN [Suspect]
     Indication: DEPRESSION
     Route: 048
     Dates: start: 20100101
  4. PLURIMEN [Suspect]
     Indication: PARKINSON'S DISEASE
     Dosage: 5 MG
     Route: 048
     Dates: start: 20100101
  5. SINEMET [Suspect]
     Indication: PARKINSON'S DISEASE
     Dosage: ATRENGTH 25CARBIDOPA/100 LEVODOPA. DAILY DOSE: 5 TABLETS/DAY
     Route: 048
     Dates: start: 20100101

REACTIONS (2)
  - DRUG INTERACTION [None]
  - SYNCOPE [None]
